FAERS Safety Report 4348268-4 (Version None)
Quarter: 2004Q2

REPORT INFORMATION
  Report Type: 
  Country: None (occurrence: None)
  Receive Date: 20040427
  Receipt Date: 20040120
  Transmission Date: 20050107
  Serious: Yes (Other)
  Sender: FDA-Public Use
  Company Number: ES-MERCK-0401ESP00023

PATIENT
  Age: 3 Year
  Sex: Male
  Weight: 18 kg

DRUGS (4)
  1. ALBUTEROL [Concomitant]
     Indication: ASTHMA
     Route: 055
     Dates: start: 19991218
  2. BUDESONIDE [Concomitant]
     Indication: ASTHMA
     Route: 055
     Dates: start: 20000131
  3. SINGULAIR [Suspect]
     Indication: ASTHMA
     Route: 048
     Dates: start: 20011004, end: 20020101
  4. SINGULAIR [Suspect]
     Route: 048
     Dates: start: 20020101, end: 20031128

REACTIONS (4)
  - DISTURBANCE IN ATTENTION [None]
  - HYPERKINESIA [None]
  - PRESCRIBED OVERDOSE [None]
  - PSYCHOMOTOR HYPERACTIVITY [None]
